FAERS Safety Report 10507070 (Version 1)
Quarter: 2014Q4

REPORT INFORMATION
  Report Type: Spontaneous
  Country: US (occurrence: None)
  Receive Date: 20141008
  Receipt Date: 20141008
  Transmission Date: 20150528
  Serious: No
  Sender: FDA-Public Use
  Company Number: None

PATIENT
  Age: 51 Year
  Sex: Female

DRUGS (1)
  1. HUMIRA [Suspect]
     Active Substance: ADALIMUMAB
     Dosage: EVERY 14 DAYS
     Route: 058
     Dates: start: 20140807

REACTIONS (4)
  - Visual impairment [None]
  - Impaired work ability [None]
  - Impaired driving ability [None]
  - Blindness [None]

NARRATIVE: CASE EVENT DATE: 20141001
